FAERS Safety Report 7031041-6 (Version None)
Quarter: 2010Q4

REPORT INFORMATION
  Report Type: 
  Country: None (occurrence: None)
  Receive Date: 20101006
  Receipt Date: 20100930
  Transmission Date: 20110411
  Serious: Yes (Other)
  Sender: FDA-Public Use
  Company Number: US-BAYER-200943768NA

PATIENT
  Sex: Female

DRUGS (14)
  1. MAGNEVIST [Suspect]
     Indication: IMAGING PROCEDURE
  2. OMNISCAN [Suspect]
     Indication: IMAGING PROCEDURE
     Dates: start: 20021204, end: 20021204
  3. OMNISCAN [Suspect]
     Dates: start: 20021211, end: 20021211
  4. OMNISCAN [Suspect]
     Dates: start: 20040916, end: 20040916
  5. OMNISCAN [Suspect]
     Dates: start: 20031101, end: 20031101
  6. OPTIMARK [Suspect]
     Indication: IMAGING PROCEDURE
  7. MULTIHANCE [Suspect]
     Indication: IMAGING PROCEDURE
  8. PROHANCE [Suspect]
     Indication: IMAGING PROCEDURE
  9. UNSPECIFIED GADOLINIUM BASED CONTRAST AGENT [Suspect]
     Indication: IMAGING PROCEDURE
     Dates: start: 19971003, end: 19971003
  10. UNSPECIFIED GADOLINIUM BASED CONTRAST AGENT [Suspect]
     Dates: start: 19990216, end: 19990216
  11. UNSPECIFIED GADOLINIUM BASED CONTRAST AGENT [Suspect]
     Dates: start: 20020825, end: 20020825
  12. UNSPECIFIED GADOLINIUM BASED CONTRAST AGENT [Suspect]
     Dates: start: 20031101, end: 20031101
  13. UNSPECIFIED GADOLINIUM BASED CONTRAST AGENT [Suspect]
     Dates: start: 20021211, end: 20021211
  14. UNSPECIFIED GADOLINIUM BASED CONTRAST AGENT [Suspect]
     Dates: start: 20020712, end: 20020712

REACTIONS (3)
  - FIBROSIS [None]
  - NEPHROGENIC SYSTEMIC FIBROSIS [None]
  - PAIN [None]
